FAERS Safety Report 7627739-9 (Version None)
Quarter: 2011Q3

REPORT INFORMATION
  Report Type: 
  Country: None (occurrence: None)
  Receive Date: 20110721
  Receipt Date: 20110718
  Transmission Date: 20111222
  Serious: Yes (Other)
  Sender: FDA-Public Use
  Company Number: US-PFIZER INC-2011024765

PATIENT
  Sex: Female
  Weight: 82 kg

DRUGS (1)
  1. DEPO-PROVERA [Suspect]
     Indication: CONTRACEPTION
     Dosage: UNK
     Route: 030
     Dates: start: 20100901, end: 20101201

REACTIONS (8)
  - DYSPNOEA [None]
  - HEADACHE [None]
  - PARAESTHESIA [None]
  - INSOMNIA [None]
  - MOOD ALTERED [None]
  - DIZZINESS [None]
  - MOOD SWINGS [None]
  - ANXIETY [None]
